FAERS Safety Report 5381158-7 (Version None)
Quarter: 2007Q3

REPORT INFORMATION
  Report Type: 
  Country: None (occurrence: None)
  Receive Date: 20070706
  Receipt Date: 20070625
  Transmission Date: 20080115
  Serious: Yes (Other)
  Sender: FDA-Public Use
  Company Number: IN-PFIZER INC-2007051197

PATIENT
  Sex: Female
  Weight: 44 kg

DRUGS (2)
  1. LYRICA [Suspect]
     Indication: PROCEDURAL PAIN
     Route: 048
     Dates: start: 20070615, end: 20070615
  2. AUGMENTIN '125' [Concomitant]
     Route: 048
     Dates: start: 20070611, end: 20070618

REACTIONS (1)
  - LOSS OF CONSCIOUSNESS [None]
